FAERS Safety Report 9352230 (Version 1)
Quarter: 2013Q2

REPORT INFORMATION
  Report Type: Spontaneous
  Country: GB (occurrence: GB)
  Receive Date: 20130617
  Receipt Date: 20130617
  Transmission Date: 20140414
  Serious: Yes (Other)
  Sender: FDA-Public Use
  Company Number: GB-MYLANLABS-2013S1012338

PATIENT
  Age: 20 Year
  Sex: Male
  Weight: 60 kg

DRUGS (4)
  1. CITALOPRAM [Suspect]
     Indication: DEPRESSION
     Route: 048
     Dates: start: 20130515, end: 20130516
  2. BACLOFEN [Concomitant]
     Indication: PRODUCT USED FOR UNKNOWN INDICATION
     Route: 037
  3. CORACTEN [Concomitant]
     Indication: PRODUCT USED FOR UNKNOWN INDICATION
  4. OMEPRAZOLE [Concomitant]
     Indication: PRODUCT USED FOR UNKNOWN INDICATION

REACTIONS (8)
  - Dry mouth [Recovered/Resolved]
  - Muscle contractions involuntary [Recovered/Resolved]
  - Muscle spasms [Recovered/Resolved]
  - Skin disorder [Unknown]
  - Musculoskeletal stiffness [Unknown]
  - Swelling [Recovering/Resolving]
  - Joint swelling [Recovered/Resolved]
  - Chills [Recovered/Resolved]
